FAERS Safety Report 10068455 (Version 1)
Quarter: 2014Q2

REPORT INFORMATION
  Report Type: Spontaneous
  Country: US (occurrence: US)
  Receive Date: 20140409
  Receipt Date: 20140409
  Transmission Date: 20141212
  Serious: Yes (Hospitalization, Other)
  Sender: FDA-Public Use
  Company Number: US-ROXANE LABORATORIES, INC.-2014-RO-00563RO

PATIENT
  Age: 55 Year
  Sex: Female

DRUGS (3)
  1. PREDNISONE [Suspect]
     Indication: IMMUNE THROMBOCYTOPENIC PURPURA
     Dosage: 80 MG
     Route: 065
  2. PREDNISONE [Suspect]
     Dosage: 60 MG
     Route: 065
  3. ELTROMBOPAG [Suspect]
     Indication: IMMUNE THROMBOCYTOPENIC PURPURA
     Dosage: 50 MG
     Route: 048

REACTIONS (4)
  - Cerebral venous thrombosis [Recovered/Resolved]
  - Venous occlusion [Recovered/Resolved]
  - Intracranial haematoma [Unknown]
  - Platelet count decreased [Unknown]
